FAERS Safety Report 5299897-5 (Version None)
Quarter: 2007Q2

REPORT INFORMATION
  Report Type: 
  Country: None (occurrence: None)
  Receive Date: 20070417
  Receipt Date: 20070405
  Transmission Date: 20071010
  Serious: Yes (Other)
  Sender: FDA-Public Use
  Company Number: US-PFIZER INC-2007027991

PATIENT
  Sex: Female
  Weight: 63.1 kg

DRUGS (3)
  1. LYRICA [Suspect]
     Indication: HYPOAESTHESIA
  2. LYRICA [Suspect]
     Indication: PARAESTHESIA
  3. VALSARTAN [Concomitant]

REACTIONS (4)
  - DRUG INEFFECTIVE [None]
  - MACULAR DEGENERATION [None]
  - VISUAL ACUITY REDUCED [None]
  - VISUAL DISTURBANCE [None]
